FAERS Safety Report 7333227-X (Version None)
Quarter: 2011Q1

REPORT INFORMATION
  Report Type: 
  Country: None (occurrence: None)
  Receive Date: 20110304
  Receipt Date: 20110224
  Transmission Date: 20110831
  Serious: Yes (Disabling)
  Sender: FDA-Public Use
  Company Number: JP-ASTRAZENECA-2011SE10888

PATIENT
  Age: 51 Year
  Sex: Female

DRUGS (1)
  1. MARCAINE [Suspect]
     Indication: POSTOPERATIVE ANALGESIA
     Dosage: 2 ML/H, 50 MG
     Route: 008

REACTIONS (1)
  - CAUDA EQUINA SYNDROME [None]
